FAERS Safety Report 24140705 (Version 1)
Quarter: 2024Q3

REPORT INFORMATION
  Report Type: Report from Study
  Country: DE (occurrence: DE)
  Receive Date: 20240726
  Receipt Date: 20240726
  Transmission Date: 20241017
  Serious: Yes (Hospitalization)
  Sender: BAXTER
  Company Number: DE-BAXTER-2024BAX022074

PATIENT
  Age: 70 Year
  Sex: Female

DRUGS (4)
  1. AMINO ACIDS\DEXTROSE\ELECTROLYTES NOS\SOYBEAN OIL [Suspect]
     Active Substance: AMINO ACIDS\DEXTROSE\ELECTROLYTES NOS\SOYBEAN OIL
     Indication: Parenteral nutrition
     Dosage: 1085 ML (MILLILITRE) AT AN UNSPECIFIED FREQUENCY ADMINISTERED VIA CENTRALVENOUS ROUTE
     Route: 042
     Dates: start: 20231129
  2. CERNEVIT [Suspect]
     Active Substance: VITAMINS
     Indication: Parenteral nutrition
     Dosage: 750 MG (MILLIGRAM) AT AN UNSPECIFIED FREQUENCY ADMINISTERED VIA CENTRALVENOUS ROUTE
     Route: 042
     Dates: start: 20231129
  3. ELECTROLYTES NOS\MINERALS [Suspect]
     Active Substance: ELECTROLYTES NOS\MINERALS
     Indication: Parenteral nutrition
     Dosage: (MANUFACTURER: LABORATOIRE AGUETTANT S.A.S.) 10 ML AT AN UNSPECIFIED FREQUENCY ADMINISTERED VIA CENT
     Route: 042
     Dates: start: 20231129
  4. UNSPECIFIED INGREDIENT [Suspect]
     Active Substance: UNSPECIFIED INGREDIENT
     Route: 065

REACTIONS (2)
  - Fall [Recovered/Resolved]
  - Confusional state [Recovered/Resolved]

NARRATIVE: CASE EVENT DATE: 20240719
